FAERS Safety Report 10546187 (Version 1)
Quarter: 2014Q4

REPORT INFORMATION
  Report Type: Report from Study
  Country: US (occurrence: US)
  Receive Date: 20141027
  Receipt Date: 20141027
  Transmission Date: 20150529
  Serious: No
  Sender: FDA-Public Use
  Company Number: US-ABBVIE-14P-163-1199775-00

PATIENT
  Age: 32 Year
  Sex: Female
  Weight: 58.11 kg

DRUGS (5)
  1. VITAMIN B12 [Concomitant]
     Active Substance: CYANOCOBALAMIN
     Indication: PRODUCT USED FOR UNKNOWN INDICATION
  2. LUPRON DEPOT [Suspect]
     Active Substance: LEUPROLIDE ACETATE
     Indication: ENDOMETRIOSIS
     Route: 030
     Dates: start: 20140123
  3. CALCIUM [Concomitant]
     Active Substance: CALCIUM
     Indication: PRODUCT USED FOR UNKNOWN INDICATION
  4. PRENATAL VITAMINS [Concomitant]
     Active Substance: VITAMINS
     Indication: PRODUCT USED FOR UNKNOWN INDICATION
  5. VITAMIN D [Concomitant]
     Active Substance: CHOLECALCIFEROL
     Indication: PRODUCT USED FOR UNKNOWN INDICATION

REACTIONS (2)
  - Adnexa uteri pain [Not Recovered/Not Resolved]
  - Headache [Not Recovered/Not Resolved]

NARRATIVE: CASE EVENT DATE: 20140207
